FAERS Safety Report 26197022 (Version 1)
Quarter: 2025Q4

REPORT INFORMATION
  Report Type: Spontaneous
  Country: CN (occurrence: CN)
  Receive Date: 20251224
  Receipt Date: 20251224
  Transmission Date: 20260118
  Serious: Yes (Hospitalization, Other)
  Sender: NOVARTIS
  Company Number: CN-002147023-NVSC2025CN194277

PATIENT
  Age: 75 Year
  Sex: Male
  Weight: 73 kg

DRUGS (2)
  1. CARBAMAZEPINE [Suspect]
     Active Substance: CARBAMAZEPINE
     Indication: Trigeminal neuralgia
     Dosage: 100 MG, BID
     Route: 048
     Dates: start: 20250801, end: 20251216
  2. PHENYTOIN SODIUM [Suspect]
     Active Substance: PHENYTOIN SODIUM
     Indication: Trigeminal neuralgia
     Dosage: 100 MG, BID
     Route: 048
     Dates: start: 20250801, end: 20251216

REACTIONS (14)
  - Dizziness [Recovering/Resolving]
  - Nausea [Recovering/Resolving]
  - Vomiting [Recovered/Resolved]
  - Illusion [Unknown]
  - Hyperhidrosis [Unknown]
  - Dizziness postural [Unknown]
  - Dysstasia [Unknown]
  - Tremor [Unknown]
  - Nephrolithiasis [Unknown]
  - Aortic valve incompetence [Unknown]
  - Aortic valve calcification [Unknown]
  - Blood pressure increased [Unknown]
  - Cardiomegaly [Unknown]
  - Vertigo [Unknown]

NARRATIVE: CASE EVENT DATE: 20251203
